FAERS Safety Report 6212959-0 (Version None)
Quarter: 2009Q2

REPORT INFORMATION
  Report Type: 
  Country: None (occurrence: None)
  Receive Date: 20090603
  Receipt Date: 20090527
  Transmission Date: 20091009
  Serious: Yes (Hospitalization)
  Sender: FDA-Public Use
  Company Number: US-AVENTIS-200914562US

PATIENT
  Sex: Female

DRUGS (2)
  1. LANTUS [Suspect]
     Dosage: DOSE: UNK
     Route: 058
  2. NOVOLOG [Suspect]
     Dosage: DOSE: UNK

REACTIONS (3)
  - HYPERGLYCAEMIA [None]
  - OXYGEN SATURATION DECREASED [None]
  - PNEUMONIA [None]
